FAERS Safety Report 4719256-0 (Version None)
Quarter: 2005Q3

REPORT INFORMATION
  Report Type: 
  Country: None (occurrence: None)
  Receive Date: 20050719
  Receipt Date: 20050719
  Transmission Date: 20060218
  Serious: Yes (Life-Threatening, Hospitalization)
  Sender: FDA-Public Use
  Company Number: None

PATIENT
  Age: 76 Year
  Sex: Male
  Weight: 105.2345 kg

DRUGS (1)
  1. LISINOPRIL [Suspect]
     Indication: HYPERTENSION
     Dosage: 40MG DAILY ORAL
     Route: 048
     Dates: start: 20021230, end: 20050714

REACTIONS (7)
  - ANGIONEUROTIC OEDEMA [None]
  - DROOLING [None]
  - DYSPHAGIA [None]
  - LOCAL SWELLING [None]
  - ODYNOPHAGIA [None]
  - OEDEMA MOUTH [None]
  - PHARYNGEAL OEDEMA [None]
